FAERS Safety Report 4410653-X (Version None)
Quarter: 2004Q3

REPORT INFORMATION
  Report Type: 
  Country: None (occurrence: None)
  Receive Date: 20040728
  Receipt Date: 20040728
  Transmission Date: 20050211
  Serious: Yes (Other)
  Sender: FDA-Public Use
  Company Number: None

PATIENT
  Age: 42 Year
  Sex: Male
  Weight: 70.3075 kg

DRUGS (2)
  1. GLYBURIDE AND METFORMIN HCL [Suspect]
  2. GLUCOVANCE [Suspect]

REACTIONS (1)
  - MEDICATION ERROR [None]
